FAERS Safety Report 6132631-5 (Version None)
Quarter: 2009Q1

REPORT INFORMATION
  Report Type: 
  Country: None (occurrence: None)
  Receive Date: 20090324
  Receipt Date: 20090310
  Transmission Date: 20090719
  Serious: Yes (Hospitalization)
  Sender: FDA-Public Use
  Company Number: None

PATIENT
  Age: 71 Year
  Sex: Female

DRUGS (3)
  1. ZICAM COLD REMEDY RAPID MELTS [Suspect]
     Indication: NASOPHARYNGITIS
     Dosage: 3-4 X A DAY FOR 5 DAYS
     Dates: start: 20090215, end: 20090220
  2. ZICAM COLD SORE GEL [Suspect]
     Dosage: 2 X A DAY FOR 3 DAYS
     Dates: start: 20090217, end: 20090220
  3. HYDROCHLOROTHIAZIDE [Concomitant]

REACTIONS (1)
  - FALL [None]
